FAERS Safety Report 5044961-9 (Version None)
Quarter: 2006Q3

REPORT INFORMATION
  Report Type: 
  Country: None (occurrence: None)
  Receive Date: 20060705
  Receipt Date: 20060613
  Transmission Date: 20061208
  Serious: Yes (Other)
  Sender: FDA-Public Use
  Company Number: US200606003315

PATIENT
  Sex: Female

DRUGS (5)
  1. HUMULIN 70/30 [Suspect]
     Indication: DIABETES MELLITUS
  2. HUMULIN R [Suspect]
     Indication: DIABETES MELLITUS
  3. HUMULIN N [Suspect]
     Indication: DIABETES MELLITUS
  4. HUMALOG [Suspect]
     Indication: DIABETES MELLITUS
  5. NOVOLOG [Concomitant]

REACTIONS (10)
  - ABORTION SPONTANEOUS [None]
  - BLOOD GLUCOSE INCREASED [None]
  - DEATH NEONATAL [None]
  - DRUG EXPOSURE DURING PREGNANCY [None]
  - IMMATURE RESPIRATORY SYSTEM [None]
  - PHARMACEUTICAL PRODUCT COMPLAINT [None]
  - POLYHYDRAMNIOS [None]
  - PREGNANCY [None]
  - PREMATURE BABY [None]
  - WEIGHT INCREASED [None]
